FAERS Safety Report 7022739-4 (Version None)
Quarter: 2010Q3

REPORT INFORMATION
  Report Type: 
  Country: None (occurrence: None)
  Receive Date: 20100930
  Receipt Date: 20100924
  Transmission Date: 20110219
  Serious: Yes (Hospitalization)
  Sender: FDA-Public Use
  Company Number: A0883214A

PATIENT
  Age: 62 Year
  Sex: Male

DRUGS (11)
  1. EPZICOM [Suspect]
     Indication: HIV INFECTION
     Dosage: 600MG PER DAY
     Route: 048
     Dates: end: 20100907
  2. LEXIVA [Suspect]
     Indication: HIV INFECTION
     Dosage: 1400MG TWICE PER DAY
     Route: 048
     Dates: end: 20100907
  3. GLUCOPHAGE [Concomitant]
  4. LISINOPRIL [Concomitant]
  5. CARVEDILOL [Concomitant]
  6. FUROSEMIDE [Concomitant]
  7. PREDNISONE [Concomitant]
  8. NIFEDIPINE [Concomitant]
  9. ALPRAZOLAM [Concomitant]
  10. GABAPENTIN [Concomitant]
  11. LYRICA [Concomitant]

REACTIONS (1)
  - BLOOD SODIUM INCREASED [None]
